FAERS Safety Report 8818753 (Version 1)
Quarter: 2012Q4

REPORT INFORMATION
  Report Type: 
  Country: US (occurrence: US)
  Receive Date: 20121002
  Receipt Date: 20121002
  Transmission Date: 20130627
  Serious: No
  Sender: FDA-Public Use
  Company Number: US-COVIDIEN/TYCO HEALTHCARE/MALLINCKRODT-T201102260

PATIENT
  Age: 72 Year
  Sex: Female

DRUGS (36)
  1. EXALGO EXTENDED RELEASE [Suspect]
     Indication: DIABETIC NEUROPATHY
     Dosage: 8 mg, UNK
     Route: 048
     Dates: start: 20110324, end: 20110401
  2. EXALGO EXTENDED RELEASE [Suspect]
     Dosage: 12 mg, UNK
     Dates: start: 20110402, end: 20110614
  3. TOPROL [Concomitant]
     Indication: HYPERTENSION
     Dosage: 12.5 mg, qd
     Dates: start: 2010, end: 20110501
  4. TOPROL [Concomitant]
     Dosage: 25 UNK, UNK
     Dates: start: 20110501
  5. NORVASC                            /00972401/ [Concomitant]
     Indication: HYPERTENSION
     Dosage: 5 mg, qd
     Dates: start: 2010
  6. ENALAPRIL [Concomitant]
     Indication: HYPERTENSION
     Dosage: 20 mg, bid
     Dates: start: 2010
  7. TRICLOR [Concomitant]
     Indication: HYPERTENSION
     Dosage: 67 mg, qd
     Dates: start: 201001
  8. NITROGLYCERIN [Concomitant]
     Indication: CORONARY ARTERY DISEASE
     Dosage: 0.4 mg, prn
     Dates: start: 201001
  9. ZETIA [Concomitant]
     Indication: BLOOD CHOLESTEROL INCREASED
     Dosage: 10 mg, qd
     Dates: start: 201012
  10. PRILOSEC                           /00661201/ [Concomitant]
     Indication: ULCER
     Dosage: 20 mg, qd
     Dates: start: 2009
  11. ZOFRAN                             /00955301/ [Concomitant]
     Indication: NAUSEA
     Dosage: 4 mg, prn
     Dates: start: 201012
  12. MIRAPEX [Concomitant]
     Indication: RESTLESS LEGS SYNDROME
     Dosage: 0.5 mg, qd
     Dates: start: 2009
  13. NAMENDA [Concomitant]
     Indication: DEMENTIA
     Dosage: 10 mg, bid
     Dates: start: 200707
  14. ARICEPT                            /01318902/ [Concomitant]
     Indication: DEMENTIA
     Dosage: 10 mg, qd
     Dates: start: 200707
  15. NEURONTIN [Concomitant]
     Indication: NEURALGIA
     Dosage: 300 mg, bid
     Dates: start: 2009
  16. TRAZODONE [Concomitant]
     Indication: INSOMNIA
     Dosage: 125 mg, qd
     Dates: start: 2009
  17. PERCOCET                           /00446701/ [Concomitant]
     Indication: DIABETIC NEUROPATHY
     Dosage: 30 mg, UNK
  18. PERCOCET                           /00446701/ [Concomitant]
     Dosage: UNK
  19. FLEXERIL                           /00428402/ [Concomitant]
     Indication: BACK PAIN
     Dosage: 10 mg, bid
     Dates: start: 2008, end: 20110420
  20. FLONASE [Concomitant]
     Indication: PROPHYLAXIS
     Dosage: 50 ?g, 5 spray 2 times,prn
     Dates: start: 201006
  21. LIDOCAINE [Concomitant]
     Indication: BACK PAIN
     Dosage: 5 %, 12hrs on, 12hrs off
     Route: 062
     Dates: start: 201006
  22. INSULIN ASPART [Concomitant]
     Indication: DIABETES MELLITUS
     Dosage: 15 units before meals
     Route: 058
     Dates: start: 2008
  23. INSULIN DETEMIR [Concomitant]
     Indication: DIABETES MELLITUS
     Dosage: 40 units, bid
     Dates: start: 2008
  24. ZOLOFT                             /01011401/ [Concomitant]
     Indication: DEPRESSION
     Dosage: 100 mg, bid
     Dates: start: 201012
  25. TRIPEPTAL [Concomitant]
     Indication: DEPRESSION
     Dosage: 150 mg, bid
     Dates: start: 201103
  26. NAPROXEN SODIUM [Concomitant]
     Indication: ARTHRITIS
     Dosage: 2-220 mg tabs, bid
     Dates: start: 2002
  27. DEPLIN [Concomitant]
     Indication: DEPRESSION
     Dosage: 15 mg, qd
     Dates: start: 201101
  28. VITAMIN B COMPLEX                  /00003501/ [Concomitant]
     Indication: SUPPLEMENTATION THERAPY
     Dosage: UNK
     Dates: start: 2009
  29. VITAMIN D3 [Concomitant]
     Indication: SUPPLEMENTATION THERAPY
     Dosage: 2000 IU, qd
     Dates: start: 2007
  30. FISH OIL [Concomitant]
     Indication: SUPPLEMENTATION THERAPY
     Dosage: 1000 mg, tid
     Dates: start: 2007
  31. IRON [Concomitant]
     Indication: SUPPLEMENTATION THERAPY
     Dosage: 65 mg, qd
     Dates: start: 2007
  32. ASPIRIN [Concomitant]
     Indication: CARDIOVASCULAR EVENT PROPHYLAXIS
     Dosage: 81 mg, qd
     Dates: start: 2007
  33. VITAMIN B12                        /00056201/ [Concomitant]
     Indication: SUPPLEMENTATION THERAPY
     Dosage: UNK
     Dates: start: 20110504
  34. VITAMIN B6 [Concomitant]
     Indication: SUPPLEMENTATION THERAPY
     Dosage: UNK
     Dates: start: 20110504
  35. NIACIN [Concomitant]
     Indication: SUPPLEMENTATION THERAPY
     Dosage: UNK
     Dates: start: 20110504
  36. PERCOCET /00867901/ [Concomitant]
     Indication: BACK PAIN
     Dosage: 10/325, tid
     Dates: start: 201002

REACTIONS (6)
  - Tardive dyskinesia [Not Recovered/Not Resolved]
  - Influenza [Not Recovered/Not Resolved]
  - Neck pain [Recovered/Resolved]
  - Back pain [Recovered/Resolved]
  - Insomnia [Recovered/Resolved]
  - Hyperhidrosis [Not Recovered/Not Resolved]
